FAERS Safety Report 16635457 (Version 1)
Quarter: 2019Q3

REPORT INFORMATION
  Report Type: Spontaneous
  Country: CN (occurrence: CN)
  Receive Date: 20190726
  Receipt Date: 20190726
  Transmission Date: 20191004
  Serious: Yes (Other)
  Sender: FDA-Public Use
  Company Number: CN-BAXTER-2019BAX014293

PATIENT
  Age: 53 Year
  Sex: Female
  Weight: 54 kg

DRUGS (4)
  1. EPIRUBICIN HYDROCHLORIDE. [Suspect]
     Active Substance: EPIRUBICIN HYDROCHLORIDE
     Indication: INVASIVE DUCTAL BREAST CARCINOMA
     Dosage: EPIRUBICIN HYDROCHLORIDE + 0.9% NS 250 ML
     Route: 041
     Dates: start: 20190704, end: 20190704
  2. 0.9% SODIUM CHLORIDE INJECTION [Suspect]
     Active Substance: SODIUM CHLORIDE
     Indication: MEDICATION DILUTION
     Dosage: CYCLOPHOSPHAMIDE FOR INJECTION 662 MG + 0.9% NS
     Route: 041
     Dates: start: 20190704, end: 20190704
  3. 0.9% SODIUM CHLORIDE INJECTION [Suspect]
     Active Substance: SODIUM CHLORIDE
     Dosage: EPIRUBICIN HYDROCHLORIDE 97 MG + 0.9% NS
     Route: 041
     Dates: start: 20190704, end: 20190704
  4. ENDOXAN [Suspect]
     Active Substance: CYCLOPHOSPHAMIDE
     Indication: INVASIVE DUCTAL BREAST CARCINOMA
     Dosage: CYCLOPHOSPHAMIDE +0.9% NS 100 ML
     Route: 041
     Dates: start: 20190704, end: 20190704

REACTIONS (1)
  - Leukopenia [Recovering/Resolving]

NARRATIVE: CASE EVENT DATE: 20190707
